FAERS Safety Report 5325583-9 (Version None)
Quarter: 2007Q2

REPORT INFORMATION
  Report Type: 
  Country: None (occurrence: None)
  Receive Date: 20070515
  Receipt Date: 20070503
  Transmission Date: 20071010
  Serious: Yes (Other)
  Sender: FDA-Public Use
  Company Number: US-ELI_LILLY_AND_COMPANY-US200705001490

PATIENT
  Age: 7 Year
  Sex: Male

DRUGS (3)
  1. STRATTERA [Suspect]
     Indication: ATTENTION DEFICIT/HYPERACTIVITY DISORDER
     Dosage: 18 MG, UNK
  2. STRATTERA [Suspect]
     Dosage: 25 MG, UNK
     Dates: end: 20070502
  3. ADDERALL 10 [Concomitant]

REACTIONS (1)
  - SELF INJURIOUS BEHAVIOUR [None]
